FAERS Safety Report 18803280 (Version 1)
Quarter: 2021Q1

REPORT INFORMATION
  Report Type: Spontaneous
  Country: BE (occurrence: BE)
  Receive Date: 20210129
  Receipt Date: 20210129
  Transmission Date: 20210419
  Serious: Yes (Life-Threatening, Other)
  Sender: FDA-Public Use
  Company Number: BE-SA-2021SA027554

PATIENT
  Age: 49 Year
  Sex: Female
  Weight: 65 kg

DRUGS (1)
  1. ZOLPIDEM TARTRATE. [Suspect]
     Active Substance: ZOLPIDEM TARTRATE
     Indication: INSOMNIA
     Dosage: 1 DF, QD, BEFORE BEDTIMEPATIENT HAD TAKEN 1 TABLET 10MG THE NIGHT BEFORE, BEFORE GOING TO SLEEP
     Route: 048
     Dates: start: 20201214, end: 20201216

REACTIONS (2)
  - Derealisation [Recovering/Resolving]
  - Suicide attempt [Recovering/Resolving]
